FAERS Safety Report 4461594-3 (Version None)
Quarter: 2004Q3

REPORT INFORMATION
  Report Type: 
  Country: None (occurrence: None)
  Receive Date: 20040924
  Receipt Date: 20040913
  Transmission Date: 20050211
  Serious: Yes (Hospitalization, Other)
  Sender: FDA-Public Use
  Company Number: 202423

PATIENT
  Age: 41 Year
  Sex: Female
  Weight: 70.3075 kg

DRUGS (3)
  1. AVONEX [Suspect]
     Indication: MULTIPLE SCLEROSIS
     Dosage: 30 MCG QW IM
     Route: 030
     Dates: start: 20000101, end: 20040101
  2. AVONEX [Suspect]
     Indication: MULTIPLE SCLEROSIS
     Dosage: 30 MCG QW IM
     Route: 030
     Dates: start: 20040101
  3. NEURONTIN [Concomitant]

REACTIONS (18)
  - ADJUSTMENT DISORDER [None]
  - ASTHENIA [None]
  - CHILLS [None]
  - CONVULSION [None]
  - DEPRESSION [None]
  - FALL [None]
  - FATIGUE [None]
  - GAIT DISTURBANCE [None]
  - GLOSSODYNIA [None]
  - HYPOAESTHESIA ORAL [None]
  - INFLUENZA LIKE ILLNESS [None]
  - MEMORY IMPAIRMENT [None]
  - PAIN [None]
  - PYREXIA [None]
  - RADIUS FRACTURE [None]
  - SPEECH DISORDER [None]
  - ULNA FRACTURE [None]
  - VOMITING [None]
